FAERS Safety Report 20023338 (Version 1)
Quarter: 2021Q4

REPORT INFORMATION
  Report Type: Spontaneous
  Country: US (occurrence: US)
  Receive Date: 20211102
  Receipt Date: 20211102
  Transmission Date: 20220304
  Serious: No
  Sender: FDA-Public Use
  Company Number: US-GILEAD-2021-0554190

PATIENT
  Sex: Male
  Weight: 99.773 kg

DRUGS (3)
  1. AMBRISENTAN [Suspect]
     Active Substance: AMBRISENTAN
     Indication: Product used for unknown indication
     Dosage: UNK
     Route: 065
     Dates: end: 202109
  2. TYVASO [Suspect]
     Active Substance: TREPROSTINIL
     Indication: Pulmonary arterial hypertension
     Dosage: 0.6 MG/ML, 3-12 BREATHS
     Route: 055
     Dates: start: 20211004
  3. FELODIPINE [Concomitant]
     Active Substance: FELODIPINE

REACTIONS (1)
  - Therapy cessation [Unknown]
